FAERS Safety Report 21278686 (Version 2)
Quarter: 2023Q1

REPORT INFORMATION
  Report Type: Other
  Country: CA (occurrence: CA)
  Receive Date: 20220901
  Receipt Date: 20230307
  Transmission Date: 20230418
  Serious: Yes (Hospitalization)
  Sender: FDA-Public Use
  Company Number: CA-TOLMAR, INC.-22CA036378

PATIENT
  Sex: Male

DRUGS (3)
  1. ELIGARD [Suspect]
     Active Substance: LEUPROLIDE ACETATE
     Indication: Prostate cancer
     Dosage: 45 MILLIGRAM, Q 6 MONTH
     Route: 058
     Dates: start: 20210920
  2. ELIGARD [Suspect]
     Active Substance: LEUPROLIDE ACETATE
     Dosage: 45 MILLIGRAM, Q 6 MONTH
     Route: 058
     Dates: start: 20220825
  3. ELIGARD [Suspect]
     Active Substance: LEUPROLIDE ACETATE
     Dosage: 45 MILLIGRAM, Q 6 MONTH
     Route: 058
     Dates: start: 20230208

REACTIONS (4)
  - Heart rate irregular [Unknown]
  - Cardiac failure congestive [Unknown]
  - Haematuria [Unknown]
  - Hyperhidrosis [Unknown]
